FAERS Safety Report 24939252 (Version 1)
Quarter: 2025Q1

REPORT INFORMATION
  Report Type: Report from Study
  Country: US (occurrence: US)
  Receive Date: 20250206
  Receipt Date: 20250206
  Transmission Date: 20250408
  Serious: Yes (Other)
  Sender: ABBVIE
  Company Number: US-ABBVIE-5735213

PATIENT
  Sex: Female

DRUGS (2)
  1. RINVOQ [Suspect]
     Active Substance: UPADACITINIB
     Indication: Rheumatoid arthritis
     Route: 048
     Dates: start: 20220601
  2. RINVOQ [Suspect]
     Active Substance: UPADACITINIB
     Indication: Rheumatoid arthritis
     Route: 048

REACTIONS (7)
  - Cholecystectomy [Recovering/Resolving]
  - Post procedural complication [Not Recovered/Not Resolved]
  - Bone disorder [Recovering/Resolving]
  - Dysphonia [Not Recovered/Not Resolved]
  - Arthralgia [Recovering/Resolving]
  - Osteoarthritis [Not Recovered/Not Resolved]
  - Hepatic steatosis [Not Recovered/Not Resolved]
